FAERS Safety Report 5657466-9 (Version None)
Quarter: 2008Q1

REPORT INFORMATION
  Report Type: 
  Country: None (occurrence: None)
  Receive Date: 20080310
  Receipt Date: 20080227
  Transmission Date: 20080703
  Serious: Yes (Other)
  Sender: FDA-Public Use
  Company Number: SE-PFIZER INC-2008018745

PATIENT
  Sex: Female

DRUGS (4)
  1. LYRICA [Suspect]
     Indication: ANXIETY DISORDER
     Route: 048
     Dates: start: 20070725, end: 20070728
  2. ZOLPIDEM [Concomitant]
  3. FOLIC ACID [Concomitant]
  4. ALIMEMAZIN HYDROCHLORIDE [Concomitant]

REACTIONS (3)
  - CONVULSION [None]
  - HYPOTENSION [None]
  - SYNCOPE [None]
